FAERS Safety Report 10167852 (Version 3)
Quarter: 2014Q2

REPORT INFORMATION
  Report Type: Report from Study
  Country: AR (occurrence: AR)
  Receive Date: 20140512
  Receipt Date: 20140611
  Transmission Date: 20141212
  Serious: Yes (Other)
  Sender: FDA-Public Use
  Company Number: PHHY2014AR053189

PATIENT
  Age: 49 Year
  Sex: Female

DRUGS (1)
  1. EXFORGE [Suspect]
     Indication: HYPERTENSION
     Dosage: 1.5 DF (160/5 MG), DAILY
     Route: 048

REACTIONS (6)
  - Brain neoplasm [Recovered/Resolved]
  - Head and neck cancer [Recovered/Resolved]
  - Optic nerve injury [Recovered/Resolved]
  - Visual impairment [Recovered/Resolved]
  - Visual acuity reduced [Recovered/Resolved]
  - Wrong technique in drug usage process [Unknown]
